FAERS Safety Report 10098162 (Version 1)
Quarter: 2014Q2

REPORT INFORMATION
  Report Type: Spontaneous
  Country: GB (occurrence: GB)
  Receive Date: 20140423
  Receipt Date: 20140423
  Transmission Date: 20141212
  Serious: Yes (Hospitalization)
  Sender: FDA-Public Use
  Company Number: GB-ELI_LILLY_AND_COMPANY-GB201404003250

PATIENT
  Age: 37 Year
  Sex: Female

DRUGS (2)
  1. FLUOXETINE [Suspect]
     Indication: PREMENSTRUAL SYNDROME
     Dosage: 20 MG, QD
     Route: 048
     Dates: start: 201402
  2. DICLOFENAC [Interacting]
     Indication: PAIN
     Dosage: 46.5 MG, BID
     Route: 048

REACTIONS (2)
  - Gastric ulcer perforation [Recovered/Resolved]
  - Drug interaction [Unknown]
